FAERS Safety Report 9313523 (Version 1)
Quarter: 2013Q2

REPORT INFORMATION
  Report Type: Spontaneous
  Country: NL (occurrence: NL)
  Receive Date: 20130528
  Receipt Date: 20130528
  Transmission Date: 20140414
  Serious: Yes (Death, Hospitalization)
  Sender: FDA-Public Use
  Company Number: PHHY2013NL052776

PATIENT
  Sex: Female

DRUGS (2)
  1. CYPROTERONE ACETATE+ETHINYLESTRADIOL [Suspect]
     Indication: ACNE
  2. DICLOFENAC [Concomitant]

REACTIONS (4)
  - Pulmonary embolism [Fatal]
  - Paralysis [Unknown]
  - Pelvic venous thrombosis [Unknown]
  - Visual impairment [Unknown]
